FAERS Safety Report 24326819 (Version 1)
Quarter: 2024Q3

REPORT INFORMATION
  Report Type: Report from Study
  Country: US (occurrence: US)
  Receive Date: 20240917
  Receipt Date: 20240917
  Transmission Date: 20241016
  Serious: Yes (Hospitalization, Other)
  Sender: ABBVIE
  Company Number: US-ABBVIE-5920751

PATIENT
  Sex: Female

DRUGS (2)
  1. HUMIRA [Suspect]
     Active Substance: ADALIMUMAB
     Indication: Rheumatoid arthritis
     Route: 058
     Dates: start: 20240622
  2. CARBON DIOXIDE [Concomitant]
     Active Substance: CARBON DIOXIDE
     Indication: Product used for unknown indication

REACTIONS (4)
  - Loss of consciousness [Unknown]
  - Pneumonia [Recovering/Resolving]
  - Malaise [Unknown]
  - Incoherent [Unknown]

NARRATIVE: CASE EVENT DATE: 20240101
